FAERS Safety Report 20487073 (Version 2)
Quarter: 2022Q1

REPORT INFORMATION
  Report Type: Spontaneous
  Country: NO (occurrence: NO)
  Receive Date: 20220217
  Receipt Date: 20220331
  Transmission Date: 20220423
  Serious: No
  Sender: FDA-Public Use
  Company Number: NO-JNJFOC-20220223089

PATIENT
  Sex: Male

DRUGS (3)
  1. FENTANYL [Suspect]
     Active Substance: FENTANYL
     Indication: Pain
     Dosage: STRENGTH: 50.00 MCG/HR
     Route: 062
  2. FENTANYL [Suspect]
     Active Substance: FENTANYL
  3. FENTANYL [Suspect]
     Active Substance: FENTANYL

REACTIONS (3)
  - Product adhesion issue [Unknown]
  - Product use issue [Unknown]
  - Off label use [Unknown]

NARRATIVE: CASE EVENT DATE: 20220206
